FAERS Safety Report 7110102-7 (Version None)
Quarter: 2010Q4

REPORT INFORMATION
  Report Type: 
  Country: None (occurrence: None)
  Receive Date: 20101116
  Receipt Date: 20101116
  Transmission Date: 20110411
  Serious: No
  Sender: FDA-Public Use
  Company Number: None

PATIENT
  Sex: Female
  Weight: 108.8633 kg

DRUGS (1)
  1. LIPITOR [Suspect]
     Indication: BLOOD CHOLESTEROL INCREASED
     Dosage: 20MG ONE AT NIGHT PO
     Route: 048
     Dates: start: 20101027, end: 20101103

REACTIONS (2)
  - DYSPEPSIA [None]
  - FLATULENCE [None]
